FAERS Safety Report 16199010 (Version 3)
Quarter: 2019Q2

REPORT INFORMATION
  Report Type: Report from Study
  Country: DE (occurrence: DE)
  Receive Date: 20190415
  Receipt Date: 20190426
  Transmission Date: 20190711
  Serious: Yes (Hospitalization)
  Sender: FDA-Public Use
  Company Number: DE-JNJFOC-20190419378

PATIENT
  Age: 77 Year
  Sex: Male
  Weight: 60 kg

DRUGS (17)
  1. XARELTO [Suspect]
     Active Substance: RIVAROXABAN
     Indication: CORONARY ARTERY DISEASE
     Route: 048
     Dates: start: 20190128, end: 20190322
  2. XARELTO [Suspect]
     Active Substance: RIVAROXABAN
     Indication: CORONARY ARTERY DISEASE
     Route: 048
     Dates: start: 20190327
  3. PREGABALIN. [Concomitant]
     Active Substance: PREGABALIN
     Route: 065
     Dates: start: 2013
  4. PIRACETAM [Concomitant]
     Active Substance: PIRACETAM
     Route: 065
  5. ASA [Suspect]
     Active Substance: ASPIRIN
     Indication: PERIPHERAL ARTERIAL OCCLUSIVE DISEASE
     Route: 065
     Dates: start: 20190125, end: 20190322
  6. CANDESARTAN. [Concomitant]
     Active Substance: CANDESARTAN
     Route: 065
     Dates: start: 2003
  7. ASA [Suspect]
     Active Substance: ASPIRIN
     Indication: CORONARY ARTERY DISEASE
     Route: 065
     Dates: start: 20190327
  8. AMLODIPINE [Concomitant]
     Active Substance: AMLODIPINE BESYLATE
     Route: 065
     Dates: start: 2003
  9. TORASEMID [Concomitant]
     Active Substance: TORSEMIDE
     Route: 065
     Dates: start: 2003
  10. XARELTO [Suspect]
     Active Substance: RIVAROXABAN
     Indication: PERIPHERAL ARTERIAL OCCLUSIVE DISEASE
     Route: 048
     Dates: start: 20190327
  11. ASA [Suspect]
     Active Substance: ASPIRIN
     Indication: CORONARY ARTERY DISEASE
     Route: 065
     Dates: start: 20190125, end: 20190322
  12. PHENPROCOUMON [Concomitant]
     Active Substance: PHENPROCOUMON
     Route: 065
     Dates: start: 20180430, end: 20190124
  13. METOPROLOL. [Concomitant]
     Active Substance: METOPROLOL
     Route: 065
     Dates: start: 2003
  14. XARELTO [Suspect]
     Active Substance: RIVAROXABAN
     Indication: PERIPHERAL ARTERIAL OCCLUSIVE DISEASE
     Route: 048
     Dates: start: 20190128, end: 20190322
  15. ASA [Suspect]
     Active Substance: ASPIRIN
     Indication: PERIPHERAL ARTERIAL OCCLUSIVE DISEASE
     Route: 065
     Dates: start: 20190327
  16. SIMVASTATIN. [Concomitant]
     Active Substance: SIMVASTATIN
     Route: 065
     Dates: start: 2003
  17. PANTOPRAZOLE [Concomitant]
     Active Substance: PANTOPRAZOLE
     Route: 065
     Dates: start: 20190322

REACTIONS (3)
  - Anaemia [Recovered/Resolved]
  - Dyspnoea [Recovered/Resolved]
  - Anastomotic infection [Recovered/Resolved]

NARRATIVE: CASE EVENT DATE: 20190319
